FAERS Safety Report 8991199 (Version 1)
Quarter: 2012Q4

REPORT INFORMATION
  Report Type: Spontaneous
  Country: US (occurrence: None)
  Receive Date: 20121227
  Receipt Date: 20121227
  Transmission Date: 20130627
  Serious: No
  Sender: FDA-Public Use
  Company Number: None

PATIENT
  Age: 20 Year
  Sex: Female
  Weight: 99.79 kg

DRUGS (2)
  1. TRAZADONE [Suspect]
     Indication: SLEEP DISORDER
     Dosage: 1 pill at night po
     Route: 048
     Dates: start: 20121101, end: 20121224
  2. GEODON [Concomitant]

REACTIONS (1)
  - Nightmare [None]
